FAERS Safety Report 4722528-7 (Version None)
Quarter: 2005Q3

REPORT INFORMATION
  Report Type: 
  Country: None (occurrence: None)
  Receive Date: 20050722
  Receipt Date: 20050712
  Transmission Date: 20060218
  Serious: Yes (Other)
  Sender: FDA-Public Use
  Company Number: JP-JNJFOC-20050702975

PATIENT
  Age: 48 Year
  Sex: Female

DRUGS (1)
  1. ITRIZOLE [Suspect]
     Indication: ONYCHOMYCOSIS
     Route: 048
     Dates: start: 20050702, end: 20050708

REACTIONS (2)
  - OEDEMA PERIPHERAL [None]
  - SINUS BRADYCARDIA [None]
